FAERS Safety Report 10692722 (Version 1)
Quarter: 2015Q1

REPORT INFORMATION
  Report Type: Spontaneous
  Country: US (occurrence: None)
  Receive Date: 20150105
  Receipt Date: 20150105
  Transmission Date: 20150720
  Serious: Yes (Other)
  Sender: FDA-Public Use
  Company Number: None

PATIENT
  Age: 60 Year
  Sex: Female

DRUGS (1)
  1. BYDUREON [Suspect]
     Active Substance: EXENATIDE
     Indication: DIABETES MELLITUS
     Dosage: ONCE PER WEEK, GIVEN INTO/UNDER THE SKIN
     Dates: start: 20131112, end: 20131211

REACTIONS (4)
  - Injection site mass [None]
  - Injection site erythema [None]
  - Injection site pruritus [None]
  - Abdominal pain [None]

NARRATIVE: CASE EVENT DATE: 20131206
